FAERS Safety Report 19464519 (Version 6)
Quarter: 2022Q2

REPORT INFORMATION
  Report Type: Report from Study
  Country: DE (occurrence: DE)
  Receive Date: 20210626
  Receipt Date: 20220616
  Transmission Date: 20220721
  Serious: Yes (Hospitalization)
  Sender: FDA-Public Use
  Company Number: None

PATIENT
  Age: 48 Year
  Sex: Male

DRUGS (9)
  1. HUMIRA [Suspect]
     Active Substance: ADALIMUMAB
     Indication: Rheumatoid arthritis
     Route: 058
     Dates: start: 20170905, end: 20171213
  2. HUMIRA [Suspect]
     Active Substance: ADALIMUMAB
     Indication: Spondyloarthropathy
     Route: 058
  3. SIMPONI [Suspect]
     Active Substance: GOLIMUMAB
     Indication: Axial spondyloarthritis
     Route: 058
     Dates: start: 20171220
  4. SIMPONI [Suspect]
     Active Substance: GOLIMUMAB
     Indication: Spondyloarthropathy
     Route: 058
  5. CELECOXIB [Concomitant]
     Active Substance: CELECOXIB
     Indication: Product used for unknown indication
     Dosage: 2800 MG/WEEK
     Route: 065
     Dates: start: 20171124, end: 20180101
  6. CELECOXIB [Concomitant]
     Active Substance: CELECOXIB
     Dosage: 2800 MG/ A WEEK
     Route: 065
     Dates: start: 20180716, end: 20181115
  7. CELECOXIB [Concomitant]
     Active Substance: CELECOXIB
     Route: 065
     Dates: start: 20190122, end: 20211225
  8. ETORICOXIB [Concomitant]
     Active Substance: ETORICOXIB
     Indication: Product used for unknown indication
     Dosage: 840 MG PER DAY=840/7=120 MG ONCE
     Route: 065
     Dates: start: 20181207, end: 20190122
  9. ACEMETACIN [Concomitant]
     Active Substance: ACEMETACIN
     Indication: Product used for unknown indication
     Route: 065
     Dates: start: 20170828

REACTIONS (20)
  - Chronic idiopathic pain syndrome [Unknown]
  - Colorectal adenoma [Recovered/Resolved]
  - Chronic idiopathic pain syndrome [Recovered/Resolved]
  - Emphysema [Unknown]
  - Restless legs syndrome [Recovered/Resolved]
  - Intervertebral disc protrusion [Not Recovered/Not Resolved]
  - Axial spondyloarthritis [Unknown]
  - Chronic gastritis [Not Recovered/Not Resolved]
  - Lymphadenopathy mediastinal [Unknown]
  - Bronchial hyperreactivity [Unknown]
  - Vertigo [Unknown]
  - Hyperhidrosis [Unknown]
  - Chronic obstructive pulmonary disease [Unknown]
  - Oral herpes [Unknown]
  - Influenza like illness [Unknown]
  - Gastrointestinal infection [Not Recovered/Not Resolved]
  - Diarrhoea [Unknown]
  - Nausea [Unknown]
  - Abdominal discomfort [Unknown]
  - Nasopharyngitis [Unknown]

NARRATIVE: CASE EVENT DATE: 20171225
